FAERS Safety Report 10528952 (Version 1)
Quarter: 2014Q4

REPORT INFORMATION
  Report Type: Spontaneous
  Country: CN (occurrence: CN)
  Receive Date: 20141020
  Receipt Date: 20141020
  Transmission Date: 20150528
  Serious: Yes (Hospitalization)
  Sender: FDA-Public Use
  Company Number: CN-PFIZER INC-2014285540

PATIENT
  Age: 2 Year
  Sex: Male
  Weight: 14 kg

DRUGS (2)
  1. CEFTIZOXIME SODIUM [Suspect]
     Active Substance: CEFTIZOXIME SODIUM
     Indication: BRONCHOPNEUMONIA
     Dosage: 1 G, 1X/DAY
     Route: 041
     Dates: start: 20140326, end: 20140327
  2. SOLU-MEDROL [Suspect]
     Active Substance: METHYLPREDNISOLONE SODIUM SUCCINATE
     Indication: BRONCHOPNEUMONIA
     Dosage: 28 MG, 1X/DAY
     Route: 041
     Dates: start: 20140326, end: 20140327

REACTIONS (7)
  - Rash pruritic [Recovering/Resolving]
  - Lip oedema [Recovering/Resolving]
  - Flushing [None]
  - Wheezing [None]
  - Anoxia [None]
  - Dysphoria [None]
  - Eyelid oedema [Recovering/Resolving]

NARRATIVE: CASE EVENT DATE: 20140327
